FAERS Safety Report 9551969 (Version 4)
Quarter: 2014Q1

REPORT INFORMATION
  Report Type: Report from Study
  Country: DE (occurrence: DE)
  Receive Date: 20130925
  Receipt Date: 20140221
  Transmission Date: 20141002
  Serious: Yes (Life-Threatening, Other)
  Sender: FDA-Public Use
  Company Number: DE-BAYER-2013-113742

PATIENT
  Age: 62 Year
  Sex: Male

DRUGS (13)
  1. NEXAVAR [Suspect]
     Indication: HEPATOCELLULAR CARCINOMA
     Dosage: 400 MG, UNK
     Dates: start: 20100113, end: 20100118
  2. NEXAVAR [Suspect]
     Indication: HEPATOCELLULAR CARCINOMA
     Dosage: 800 MG/DAY
     Dates: start: 20100118, end: 20100311
  3. NEXAVAR [Suspect]
     Indication: HEPATOCELLULAR CARCINOMA
     Dosage: UNK
     Dates: start: 201008, end: 20101015
  4. NEXAVAR [Suspect]
     Indication: HEPATOCELLULAR CARCINOMA
     Dosage: UNK
     Dates: start: 20101015, end: 20131022
  5. SANDIMMUN [Concomitant]
     Indication: LIVER TRANSPLANT
     Dosage: 50 MG
  6. ZEFFIX [Concomitant]
     Indication: HEPATITIS B
  7. ASS [Concomitant]
     Indication: CORONARY ARTERY DISEASE
     Dosage: 100 MG
  8. IDEOS [Concomitant]
     Indication: OSTEOPOROSIS
  9. PANTOZOL [Concomitant]
     Indication: PROPHYLAXIS AGAINST GASTROINTESTINAL ULCER
     Dosage: 40 MG
  10. BELOC-ZOC COMP [Concomitant]
     Indication: HYPERTENSION
  11. ATACAND [CANDESARTAN CILEXETIL] [Concomitant]
     Indication: HYPERTENSION
     Dosage: 16 MG
  12. FLUVASTATIN [Concomitant]
     Indication: HYPERLIPIDAEMIA
     Dosage: 20 MG
  13. NOVORAPID [Concomitant]
     Indication: TYPE 2 DIABETES MELLITUS

REACTIONS (5)
  - Hepatitis cholestatic [Recovering/Resolving]
  - Cholestasis [None]
  - Transaminases increased [None]
  - Blood bilirubin increased [Recovering/Resolving]
  - Palmar-plantar erythrodysaesthesia syndrome [None]
